FAERS Safety Report 5808214-0 (Version None)
Quarter: 2008Q3

REPORT INFORMATION
  Report Type: 
  Country: None (occurrence: None)
  Receive Date: 20080709
  Receipt Date: 20080630
  Transmission Date: 20090109
  Serious: Yes (Other)
  Sender: FDA-Public Use
  Company Number: 2008BI013237

PATIENT
  Age: 36 Year
  Sex: Female

DRUGS (3)
  1. TYSABRI [Suspect]
     Indication: MULTIPLE SCLEROSIS
     Dosage: IV; 300 MG; QM; IV
     Route: 042
     Dates: start: 20071108, end: 20080331
  2. TYSABRI [Suspect]
     Indication: MULTIPLE SCLEROSIS
     Dosage: IV; 300 MG; QM; IV
     Route: 042
     Dates: start: 20050204
  3. AVONEX [Concomitant]

REACTIONS (10)
  - ABDOMINAL PAIN [None]
  - CENTRAL NERVOUS SYSTEM LESION [None]
  - COUGH [None]
  - GRANULOCYTOPENIA [None]
  - INFLUENZA [None]
  - MALAISE [None]
  - MULTIPLE SCLEROSIS RELAPSE [None]
  - NASOPHARYNGITIS [None]
  - NAUSEA [None]
  - PHARYNGITIS STREPTOCOCCAL [None]
